FAERS Safety Report 5786593-0 (Version None)
Quarter: 2008Q2

REPORT INFORMATION
  Report Type: 
  Country: None (occurrence: None)
  Receive Date: 20080624
  Receipt Date: 20080614
  Transmission Date: 20081010
  Serious: Yes (Death)
  Sender: FDA-Public Use
  Company Number: CA-ABBOTT-08P-028-0454948-00

PATIENT
  Sex: Male
  Weight: 55 kg

DRUGS (1)
  1. MAVIK [Suspect]
     Indication: HYPERTENSION
     Route: 048
     Dates: start: 20071105, end: 20080401

REACTIONS (2)
  - GASTRIC CANCER [None]
  - HEPATIC CANCER METASTATIC [None]
